FAERS Safety Report 11263132 (Version 1)
Quarter: 2015Q3

REPORT INFORMATION
  Report Type: Spontaneous
  Country: SA (occurrence: SA)
  Receive Date: 20150710
  Receipt Date: 20150710
  Transmission Date: 20151125
  Serious: Yes (Death)
  Sender: FDA-Public Use
  Company Number: SA-BIOMARINAP-SA-2015-106794

PATIENT
  Age: 3 Year
  Sex: Male
  Weight: 25 kg

DRUGS (3)
  1. TYLENOL [Concomitant]
     Active Substance: ACETAMINOPHEN
     Indication: PREMEDICATION
  2. BENADRYL [Concomitant]
     Active Substance: DIPHENHYDRAMINE HYDROCHLORIDE
     Indication: PREMEDICATION
  3. NAGLAZYME [Suspect]
     Active Substance: GALSULFASE
     Indication: PRODUCT USED FOR UNKNOWN INDICATION
     Dosage: 50 MG, QW
     Route: 042
     Dates: start: 2008

REACTIONS (4)
  - Mental disorder [Unknown]
  - Treatment noncompliance [Unknown]
  - Respiratory distress [Unknown]
  - Death [Fatal]

NARRATIVE: CASE EVENT DATE: 20150706
